FAERS Safety Report 24631020 (Version 1)
Quarter: 2024Q4

REPORT INFORMATION
  Report Type: Spontaneous
  Country: AR (occurrence: AR)
  Receive Date: 20241118
  Receipt Date: 20241118
  Transmission Date: 20250114
  Serious: Yes (Death, Hospitalization, Other)
  Sender: BAYER HEALTHCARE PHARMACEUTICALS INC.
  Company Number: AR-BAYER-2024A163223

PATIENT
  Age: 66 Year
  Sex: Male

DRUGS (3)
  1. ULTRAVIST [Suspect]
     Active Substance: IOPROMIDE
     Indication: Angioplasty
     Dosage: DOSE SUPPLIED: 3 CM
     Dates: start: 20241112, end: 20241112
  2. DIPHENHYDRAMINE [Concomitant]
     Active Substance: DIPHENHYDRAMINE
     Indication: Premedication
     Dosage: 2 CC
  3. HYDROCORTISONE [Concomitant]
     Active Substance: HYDROCORTISONE
     Indication: Premedication

REACTIONS (5)
  - Nausea [Fatal]
  - Malaise [Fatal]
  - Burning sensation [Fatal]
  - Restlessness [Fatal]
  - Hypotension [Fatal]

NARRATIVE: CASE EVENT DATE: 20241112
